FAERS Safety Report 22715031 (Version 2)
Quarter: 2025Q3

REPORT INFORMATION
  Report Type: Spontaneous
  Country: EU (occurrence: EU)
  Receive Date: 20230718
  Receipt Date: 20250707
  Transmission Date: 20251020
  Serious: No
  Sender: ALKEM
  Company Number: EU-ALKEM LABORATORIES LIMITED-FR-ALKEM-2022-10926

PATIENT
  Age: 52 Year
  Sex: Male

DRUGS (13)
  1. DRONABINOL [Suspect]
     Active Substance: DRONABINOL
     Indication: Neuralgia
     Route: 048
     Dates: start: 20200626
  2. DRONABINOL [Suspect]
     Active Substance: DRONABINOL
     Route: 048
     Dates: start: 20200626
  3. DRONABINOL [Suspect]
     Active Substance: DRONABINOL
     Route: 048
  4. DRONABINOL [Suspect]
     Active Substance: DRONABINOL
     Dosage: 12.5 MILLIGRAM, QD  (2.5 MG IN THE MORNING, AND 10 MG IN THE EVENING)
     Route: 065
  5. BACLOFEN [Concomitant]
     Active Substance: BACLOFEN
     Indication: Neuropathy peripheral
     Route: 065
  6. FLUOXETINE [Concomitant]
     Active Substance: FLUOXETINE HYDROCHLORIDE
     Indication: Product used for unknown indication
     Dosage: UNK, BID (20-5)
     Route: 065
  7. GABAPENTIN [Concomitant]
     Active Substance: GABAPENTIN
     Indication: Product used for unknown indication
     Dosage: 800 MILLIGRAMS, (IN TWO INTAKES)
     Route: 065
  8. IXPRIM [Concomitant]
     Active Substance: ACETAMINOPHEN\TRAMADOL HYDROCHLORIDE
     Indication: Product used for unknown indication
     Route: 065
  9. KETAMINE [Concomitant]
     Active Substance: KETAMINE
     Indication: Neuropathy peripheral
     Route: 065
  10. METFORMIN HYDROCHLORIDE\SAXAGLIPTIN [Concomitant]
     Active Substance: METFORMIN HYDROCHLORIDE\SAXAGLIPTIN
     Indication: Product used for unknown indication
     Dosage: UNK, BID (2.5/1000-0-2.5/1000)
     Route: 065
  11. LAMICTAL [Concomitant]
     Active Substance: LAMOTRIGINE
     Indication: Neuropathy peripheral
     Route: 065
  12. Loxen [Concomitant]
     Indication: Product used for unknown indication
     Dosage: UNK, BID (50-0-50)
     Route: 065
  13. OLANZAPINE [Concomitant]
     Active Substance: OLANZAPINE
     Indication: Product used for unknown indication
     Dosage: UNK, QD (0-0-5)
     Route: 065

REACTIONS (3)
  - Asthenia [Unknown]
  - Off label use [Unknown]
  - Product prescribing issue [Unknown]

NARRATIVE: CASE EVENT DATE: 20220114
